FAERS Safety Report 19205913 (Version 1)
Quarter: 2021Q2

REPORT INFORMATION
  Report Type: Spontaneous
  Country: US (occurrence: US)
  Receive Date: 20210503
  Receipt Date: 20210503
  Transmission Date: 20210717
  Serious: No
  Sender: FDA-Public Use
  Company Number: None

PATIENT
  Age: 33 Year
  Sex: Female
  Weight: 58.5 kg

DRUGS (5)
  1. VIT D [Concomitant]
     Active Substance: VITAMIN D NOS
  2. VITAMINS [Concomitant]
     Active Substance: VITAMINS
  3. OMEGA [Concomitant]
  4. DOXYCYCLINE. [Suspect]
     Active Substance: DOXYCYCLINE
  5. BIRTH CONTROL [Concomitant]
     Active Substance: UNSPECIFIED INGREDIENT

REACTIONS (3)
  - Suicidal behaviour [None]
  - Aggression [None]
  - Suicide attempt [None]

NARRATIVE: CASE EVENT DATE: 20181105
